FAERS Safety Report 11896918 (Version 2)
Quarter: 2016Q2

REPORT INFORMATION
  Report Type: Report from Study
  Country: BR (occurrence: BR)
  Receive Date: 20160107
  Receipt Date: 20160412
  Transmission Date: 20160815
  Serious: Yes (Other)
  Sender: FDA-Public Use
  Company Number: BR-ABBVIE-16K-020-1532614-00

PATIENT
  Age: 41 Year
  Sex: Female
  Weight: 70 kg

DRUGS (6)
  1. CHLORTHALIDONE. [Concomitant]
     Active Substance: CHLORTHALIDONE
     Indication: HYPERTENSION
     Route: 048
     Dates: start: 2013
  2. ESOMEPRAZOLE [Concomitant]
     Active Substance: ESOMEPRAZOLE
     Indication: GASTRIC DISORDER
     Route: 048
     Dates: start: 2014
  3. HUMIRA [Suspect]
     Active Substance: ADALIMUMAB
     Indication: PSORIATIC ARTHROPATHY
     Route: 058
     Dates: start: 20150803, end: 20151209
  4. SULFASALAZINE. [Concomitant]
     Active Substance: SULFASALAZINE
     Indication: COLITIS
     Route: 048
     Dates: start: 2014
  5. ENALAPRIL [Concomitant]
     Active Substance: ENALAPRIL
     Indication: HYPERTENSION
     Route: 048
     Dates: start: 2013
  6. MESALAZINE [Concomitant]
     Active Substance: MESALAMINE
     Indication: COLITIS
     Route: 048
     Dates: start: 2014

REACTIONS (10)
  - Food allergy [Recovered/Resolved]
  - Myocardial ischaemia [Not Recovered/Not Resolved]
  - Laryngeal oedema [Recovered/Resolved]
  - Unevaluable event [Recovered/Resolved]
  - Malaise [Unknown]
  - Cough [Recovering/Resolving]
  - Laryngeal oedema [Recovered/Resolved]
  - Food allergy [Recovered/Resolved]
  - Headache [Recovered/Resolved]
  - Unevaluable event [Recovered/Resolved]

NARRATIVE: CASE EVENT DATE: 201510
